FAERS Safety Report 9938665 (Version 1)
Quarter: 2014Q1

REPORT INFORMATION
  Report Type: Spontaneous
  Country: FR (occurrence: FR)
  Receive Date: 20140303
  Receipt Date: 20140303
  Transmission Date: 20141002
  Serious: Yes (Death)
  Sender: FDA-Public Use
  Company Number: FR-SA-2014SA021990

PATIENT
  Age: 64 Year
  Sex: Female

DRUGS (7)
  1. RIFATER [Suspect]
     Indication: TUBERCULOSIS
     Route: 048
     Dates: start: 20131217, end: 20140121
  2. MYAMBUTOL [Suspect]
     Indication: TUBERCULOSIS
     Route: 048
     Dates: start: 20131217, end: 20140121
  3. PERINDOPRIL [Concomitant]
     Indication: HYPERTENSION
     Route: 048
     Dates: end: 20140121
  4. INEXIUM [Concomitant]
     Route: 048
     Dates: end: 20140129
  5. GLUCOPHAGE [Concomitant]
     Indication: TYPE 2 DIABETES MELLITUS
     Route: 048
     Dates: end: 20140121
  6. CORTANCYL [Concomitant]
     Indication: TUBERCULOSIS
     Route: 048
     Dates: start: 20131217, end: 20140129
  7. DIFFU K [Concomitant]
     Route: 048
     Dates: end: 20140129

REACTIONS (4)
  - Drug reaction with eosinophilia and systemic symptoms [Fatal]
  - Rash maculo-papular [Fatal]
  - Cheilitis [Fatal]
  - Rash [Fatal]
